FAERS Safety Report 22122060 (Version 1)
Quarter: 2023Q1

REPORT INFORMATION
  Report Type: Spontaneous
  Country: GB (occurrence: GB)
  Receive Date: 20230321
  Receipt Date: 20230321
  Transmission Date: 20230417
  Serious: Yes (Other)
  Sender: FDA-Public Use
  Company Number: GB-APIL-2308234US

PATIENT
  Sex: Male

DRUGS (1)
  1. BOTOX [Suspect]
     Active Substance: ONABOTULINUMTOXINA
     Indication: Neurogenic bladder
     Dosage: 300 UNITS, SINGLE

REACTIONS (4)
  - Spinal cord injury [Unknown]
  - Catheter placement [Unknown]
  - Drug ineffective [Unknown]
  - Muscular weakness [Unknown]
